FAERS Safety Report 6379697-5 (Version None)
Quarter: 2009Q3

REPORT INFORMATION
  Report Type: 
  Country: None (occurrence: None)
  Receive Date: 20090928
  Receipt Date: 20090915
  Transmission Date: 20100115
  Serious: Yes (Other)
  Sender: FDA-Public Use
  Company Number: CHPA2009US17380

PATIENT
  Age: 67 Year
  Sex: Female
  Weight: 77.098 kg

DRUGS (1)
  1. VOLTAREN [Suspect]
     Indication: ARTHRITIS
     Dosage: LITTLE OF THE GEL, ONCE/SINGLE
     Route: 061
     Dates: start: 20081101, end: 20081101

REACTIONS (3)
  - CONTUSION [None]
  - DRUG ADMINISTERED AT INAPPROPRIATE SITE [None]
  - HYPERSENSITIVITY [None]
